FAERS Safety Report 9696704 (Version 1)
Quarter: 2013Q4

REPORT INFORMATION
  Report Type: Spontaneous
  Country: US (occurrence: US)
  Receive Date: 20131119
  Receipt Date: 20131119
  Transmission Date: 20140711
  Serious: No
  Sender: FDA-Public Use
  Company Number: US-GILEAD-2007-0014383

PATIENT
  Sex: Female
  Weight: 63.5 kg

DRUGS (3)
  1. LETAIRIS [Suspect]
     Indication: PULMONARY ARTERIAL HYPERTENSION
     Route: 048
     Dates: start: 20071116
  2. LETAIRIS [Suspect]
     Route: 048
     Dates: end: 20071116
  3. WARFARIN [Concomitant]
     Dosage: UD
     Route: 048

REACTIONS (2)
  - Vomiting [Unknown]
  - Headache [Unknown]
